FAERS Safety Report 12717309 (Version 1)
Quarter: 2016Q3

REPORT INFORMATION
  Report Type: Spontaneous
  Country: CN (occurrence: CN)
  Receive Date: 20160906
  Receipt Date: 20160906
  Transmission Date: 20161109
  Serious: Yes (Hospitalization, Other)
  Sender: FDA-Public Use
  Company Number: CN-GLAXOSMITHKLINE-CN2016GSK128389

PATIENT
  Age: 34 Year
  Sex: Male
  Weight: 55 kg

DRUGS (3)
  1. DICLOFENAC SODIUM. [Suspect]
     Active Substance: DICLOFENAC SODIUM
     Indication: PYREXIA
     Dosage: 25 MG, TID
     Route: 048
     Dates: start: 20160603, end: 20160603
  2. DICLOFENAC SODIUM. [Suspect]
     Active Substance: DICLOFENAC SODIUM
     Indication: PAIN
  3. DICLOFENAC SODIUM. [Suspect]
     Active Substance: DICLOFENAC SODIUM
     Indication: JOINT SWELLING

REACTIONS (3)
  - Laryngeal obstruction [Recovering/Resolving]
  - Pruritus [Recovering/Resolving]
  - Pharyngeal hypoaesthesia [Recovering/Resolving]

NARRATIVE: CASE EVENT DATE: 20160603
